FAERS Safety Report 24402764 (Version 2)
Quarter: 2024Q4

REPORT INFORMATION
  Report Type: Spontaneous
  Country: US (occurrence: US)
  Receive Date: 20241007
  Receipt Date: 20241102
  Transmission Date: 20250115
  Serious: Yes (Life-Threatening, Hospitalization, Other)
  Sender: AUROBINDO
  Company Number: US-MLMSERVICE-20240919-PI196565-00117-2

PATIENT
  Age: 43 Year
  Sex: Female

DRUGS (17)
  1. CYCLOPHOSPHAMIDE [Suspect]
     Active Substance: CYCLOPHOSPHAMIDE
     Indication: Invasive ductal breast carcinoma
     Dosage: 4 CYCLES OF CYCLOPHOSPHAMIDE
     Route: 065
  2. CYCLOPHOSPHAMIDE [Suspect]
     Active Substance: CYCLOPHOSPHAMIDE
     Indication: Breast cancer female
  3. CYCLOPHOSPHAMIDE [Suspect]
     Active Substance: CYCLOPHOSPHAMIDE
     Indication: Hormone receptor positive HER2 negative breast cancer
  4. DEXAMETHASONE [Suspect]
     Active Substance: DEXAMETHASONE
     Indication: Antiemetic supportive care
     Dosage: UNK
     Route: 065
  5. DEXAMETHASONE [Suspect]
     Active Substance: DEXAMETHASONE
     Indication: Prophylaxis of nausea and vomiting
  6. LEUPROLIDE [Suspect]
     Active Substance: LEUPROLIDE
     Indication: Breast cancer female
     Dosage: UNK
     Route: 065
  7. LEUPROLIDE [Suspect]
     Active Substance: LEUPROLIDE
     Indication: Invasive ductal breast carcinoma
  8. LEUPROLIDE [Suspect]
     Active Substance: LEUPROLIDE
     Indication: Hormone receptor positive HER2 negative breast cancer
  9. DOXORUBICIN [Suspect]
     Active Substance: DOXORUBICIN
     Indication: Invasive ductal breast carcinoma
     Dosage: 4 CYCLES OF DOSE-DENSE DOXORUBICIN
     Route: 065
  10. DOXORUBICIN [Suspect]
     Active Substance: DOXORUBICIN
     Indication: Breast cancer female
  11. DOXORUBICIN [Suspect]
     Active Substance: DOXORUBICIN
     Indication: Hormone receptor positive HER2 negative breast cancer
  12. PACLITAXEL [Suspect]
     Active Substance: PACLITAXEL
     Indication: Breast cancer female
     Dosage: 1 DOSE OF PACLITAXEL PRIOR TO PRESENTATION
     Route: 065
  13. PACLITAXEL [Suspect]
     Active Substance: PACLITAXEL
     Indication: Invasive ductal breast carcinoma
  14. PACLITAXEL [Suspect]
     Active Substance: PACLITAXEL
     Indication: Hormone receptor positive HER2 negative breast cancer
  15. VANCOMYCIN [Concomitant]
     Active Substance: VANCOMYCIN
     Indication: Evidence based treatment
     Dosage: 1250 MILLIGRAM, TWO TIMES A DAY (CONTINUED FOR 2 DAYS)
     Route: 042
  16. CEFEPIME [Concomitant]
     Active Substance: CEFEPIME HYDROCHLORIDE
     Indication: Evidence based treatment
     Dosage: 2 GRAM, 3 TIMES A DAY (CONTINUED FOR 2 DAYS)
     Route: 042
  17. AMPHOTERICIN B [Concomitant]
     Active Substance: AMPHOTERICIN B
     Indication: Antifungal prophylaxis
     Dosage: 5 MILLIGRAM/KILOGRAM, DAILY (CONTINUED FOR 5 DAYS)
     Route: 042

REACTIONS (2)
  - Pneumocystis jirovecii pneumonia [Recovering/Resolving]
  - White blood cell count decreased [Unknown]
